FAERS Safety Report 5363768-6 (Version None)
Quarter: 2007Q2

REPORT INFORMATION
  Report Type: 
  Country: None (occurrence: None)
  Receive Date: 20070620
  Receipt Date: 20070618
  Transmission Date: 20071010
  Serious: Yes (Other)
  Sender: FDA-Public Use
  Company Number: US-JNJFOC-20070300756

PATIENT
  Age: 14 Year
  Sex: Female

DRUGS (2)
  1. CONCERTA [Suspect]
     Indication: DRUG USE FOR UNKNOWN INDICATION
     Route: 048
  2. MEIJER DECONGESTANT [Suspect]
     Indication: NASOPHARYNGITIS

REACTIONS (1)
  - BLINDNESS TRANSIENT [None]
